FAERS Safety Report 8962330 (Version 1)
Quarter: 2012Q4

REPORT INFORMATION
  Report Type: Spontaneous
  Country: US (occurrence: None)
  Receive Date: 20121211
  Receipt Date: 20121211
  Transmission Date: 20130627
  Serious: No
  Sender: FDA-Public Use
  Company Number: None

PATIENT
  Sex: Male
  Weight: 58.97 kg

DRUGS (2)
  1. ZOLOFT [Suspect]
     Indication: OBSESSIVE-COMPULSIVE DISORDER
     Dosage: 100 mg 11 daily # 60
  2. ZOLOFT [Suspect]
     Indication: DEPRESSION
     Dosage: 100 mg 11 daily # 60

REACTIONS (2)
  - Product substitution issue [None]
  - Drug ineffective [None]
